FAERS Safety Report 5735550-9 (Version None)
Quarter: 2008Q2

REPORT INFORMATION
  Report Type: 
  Country: None (occurrence: None)
  Receive Date: 20080512
  Receipt Date: 20071129
  Transmission Date: 20081010
  Serious: No
  Sender: FDA-Public Use
  Company Number: US-BOEHRINGER INGELHEIM GMBH, GERMANY-2006-BP-10345BP

PATIENT
  Sex: Female

DRUGS (28)
  1. MIRAPEX [Suspect]
     Indication: MEIGE'S SYNDROME
     Route: 048
     Dates: start: 20020708, end: 20040701
  2. MIRAPEX [Suspect]
     Route: 048
     Dates: start: 20020101
  3. MIRAPEX [Suspect]
     Route: 048
     Dates: start: 20030101
  4. MIRAPEX [Suspect]
     Route: 048
     Dates: start: 20040101, end: 20040101
  5. KLONOPIN [Concomitant]
     Indication: ANXIETY
     Dates: start: 20010405
  6. KLONOPIN [Concomitant]
     Indication: INSOMNIA
  7. SINEMET [Concomitant]
     Indication: DYSTONIA
     Dates: start: 20010101
  8. SINEMET CR [Concomitant]
     Indication: DYSTONIA
     Dates: start: 20010101
  9. BOTULINUM TOXIN TYPE A [Concomitant]
     Indication: DYSTONIA
     Route: 030
     Dates: start: 20020919, end: 20060215
  10. BOTULINUM TOXIN TYPE A [Concomitant]
     Route: 030
     Dates: start: 20060524, end: 20060816
  11. BOTULINUM TOXIN TYPE A [Concomitant]
     Route: 030
     Dates: start: 20061115
  12. BENICAR HCT [Concomitant]
     Indication: HYPERTENSION
     Dates: start: 20040101
  13. ZANTAC [Concomitant]
     Dates: start: 20040101
  14. PAXIL [Concomitant]
     Dates: start: 20030101
  15. VERAPAMIL HCL [Concomitant]
  16. INFLUENZA VACCINE [Concomitant]
     Dates: start: 20041007, end: 20041007
  17. RHINOCORT [Concomitant]
     Route: 045
  18. TESSALON [Concomitant]
  19. TRIAMCINOLONE [Concomitant]
     Route: 061
     Dates: start: 20051101
  20. DYAZIDE [Concomitant]
     Indication: HYPERTENSION
  21. LIPITOR [Concomitant]
     Indication: BLOOD CHOLESTEROL INCREASED
  22. WELLBUTRIN [Concomitant]
     Indication: DEPRESSION
  23. DETROL LA [Concomitant]
     Indication: HYPERTONIC BLADDER
  24. CLONAZEPAM [Concomitant]
  25. TRIMOX/AMOXICILLIN [Concomitant]
  26. KEFLEX [Concomitant]
  27. CIPROFLOXACIN HCL [Concomitant]
  28. BENZONATATE [Concomitant]

REACTIONS (13)
  - ANXIETY [None]
  - BLOOD PRESSURE INCREASED [None]
  - DEPRESSION [None]
  - DRUG INEFFECTIVE [None]
  - EMOTIONAL DISTRESS [None]
  - HYPERTENSION [None]
  - INFLUENZA LIKE ILLNESS [None]
  - INSOMNIA [None]
  - LETHARGY [None]
  - OBSESSIVE-COMPULSIVE DISORDER [None]
  - PATHOLOGICAL GAMBLING [None]
  - TEARFULNESS [None]
  - VISION BLURRED [None]
